FAERS Safety Report 6052547-2 (Version None)
Quarter: 2009Q1

REPORT INFORMATION
  Report Type: 
  Country: None (occurrence: None)
  Receive Date: 20090116
  Receipt Date: 20090106
  Transmission Date: 20090719
  Serious: Yes (Other)
  Sender: FDA-Public Use
  Company Number: 2009AP000045

PATIENT
  Age: 74 Year
  Sex: Male

DRUGS (5)
  1. CIPROFLOXACIN [Suspect]
     Indication: BACTERAEMIA
     Dosage: 250 MG; BID; PO
     Route: 048
     Dates: start: 20090102
  2. KETOCONAZOLE [Concomitant]
  3. OXYCODONE HYDROCHLORIDE [Concomitant]
  4. MEGESTROL ACETATE [Concomitant]
  5. CORTISONE ACETATE [Concomitant]

REACTIONS (1)
  - VISUAL IMPAIRMENT [None]
